FAERS Safety Report 5710136-0 (Version None)
Quarter: 2008Q2

REPORT INFORMATION
  Report Type: 
  Country: None (occurrence: None)
  Receive Date: 20080418
  Receipt Date: 20080114
  Transmission Date: 20081010
  Serious: No
  Sender: FDA-Public Use
  Company Number: US-ASTRAZENECA-2007UW25241

PATIENT
  Age: 54 Year
  Sex: Female

DRUGS (10)
  1. TOPROL-XL [Suspect]
     Route: 048
     Dates: start: 20060228
  2. NITROGLYCERIN [Concomitant]
  3. LISINOPRIL [Concomitant]
     Route: 048
  4. ZOCOR [Concomitant]
     Route: 048
  5. POTASSIUM CHLORIDE [Concomitant]
     Route: 048
  6. ASPIRIN [Concomitant]
     Route: 048
  7. LORTAB [Concomitant]
     Route: 048
  8. TEMAZEPAM [Concomitant]
     Route: 048
  9. MECLIZINE [Concomitant]
     Route: 048
  10. LASIX [Concomitant]
     Route: 048

REACTIONS (8)
  - BLOOD PRESSURE ABNORMAL [None]
  - CHEST DISCOMFORT [None]
  - DEPRESSION [None]
  - DIZZINESS [None]
  - DYSPNOEA [None]
  - HEADACHE [None]
  - RASH [None]
  - TENSION HEADACHE [None]
